FAERS Safety Report 9596944 (Version 3)
Quarter: 2013Q4

REPORT INFORMATION
  Report Type: Report from Study
  Country: KR (occurrence: KR)
  Receive Date: 20131004
  Receipt Date: 20131008
  Transmission Date: 20140711
  Serious: Yes (Death, Hospitalization)
  Sender: FDA-Public Use
  Company Number: KR-B.I. PHARMACEUTICALS,INC./RIDGEFIELD-2013-BI-12203BI

PATIENT
  Age: 69 Year
  Sex: Male
  Weight: 48 kg

DRUGS (2)
  1. BIBW 2992 [Suspect]
     Indication: SQUAMOUS CELL CARCINOMA OF LUNG
     Dosage: 40 MG
     Route: 048
     Dates: start: 20130318, end: 20130429
  2. MEGESTROL [Concomitant]
     Indication: DECREASED APPETITE
     Dosage: 800 MG
     Route: 048
     Dates: start: 20130325, end: 20130429

REACTIONS (1)
  - Acute interstitial pneumonitis [Fatal]
